APPROVED DRUG PRODUCT: LOSARTAN POTASSIUM AND HYDROCHLOROTHIAZIDE
Active Ingredient: HYDROCHLOROTHIAZIDE; LOSARTAN POTASSIUM
Strength: 12.5MG;100MG
Dosage Form/Route: TABLET;ORAL
Application: A202289 | Product #002 | TE Code: AB
Applicant: MACLEODS PHARMACEUTICALS LTD
Approved: Aug 9, 2012 | RLD: No | RS: No | Type: RX